FAERS Safety Report 15653820 (Version 1)
Quarter: 2018Q4

REPORT INFORMATION
  Report Type: Spontaneous
  Country: US (occurrence: US)
  Receive Date: 20181123
  Receipt Date: 20181123
  Transmission Date: 20190205
  Serious: No
  Sender: FDA-Public Use
  Company Number: None

PATIENT
  Age: 70 Year
  Sex: Female

DRUGS (1)
  1. ESTRADIOL WEEKLY PATCHES [Suspect]
     Active Substance: ESTRADIOL
     Dosage: ?          OTHER FREQUENCY:ONCE WEEKLY;?
     Route: 062

REACTIONS (4)
  - Breast disorder [None]
  - Underdose [None]
  - Product substitution issue [None]
  - Product adhesion issue [None]

NARRATIVE: CASE EVENT DATE: 20181123
